FAERS Safety Report 16917660 (Version 1)
Quarter: 2019Q4

REPORT INFORMATION
  Report Type: Spontaneous
  Country: GB (occurrence: GB)
  Receive Date: 20191015
  Receipt Date: 20191015
  Transmission Date: 20200122
  Serious: Yes (Other)
  Sender: FDA-Public Use
  Company Number: GB-TEVA-2019-GB-1120574

PATIENT
  Age: 73 Year
  Sex: Female
  Weight: 69 kg

DRUGS (10)
  1. VERAPAMIL HYDROCHLORIDE. [Concomitant]
     Active Substance: VERAPAMIL HYDROCHLORIDE
     Dates: start: 20190620, end: 20190718
  2. MOMETASONE [Concomitant]
     Active Substance: MOMETASONE
     Dates: start: 20190301
  3. AVAMYS [Concomitant]
     Active Substance: FLUTICASONE FUROATE
     Dosage: SPRAY
     Dates: start: 20190701, end: 20190729
  4. NEBIVOLOL. [Concomitant]
     Active Substance: NEBIVOLOL
     Dates: start: 20190712
  5. ATENOLOL. [Concomitant]
     Active Substance: ATENOLOL
     Dosage: TAKE ONE DAILY, MAY BE INCREASED TO TWO DAILY I...
     Dates: start: 20190701, end: 20190729
  6. NITROFURANTOIN. [Suspect]
     Active Substance: NITROFURANTOIN
     Dosage: 200 MILLIGRAM
     Dates: start: 20190911, end: 20190916
  7. PHENOXYMETHYLPENICILLIN [Concomitant]
     Active Substance: PENICILLIN V
     Dosage: CONTINUOUSLY
     Dates: start: 20181218
  8. TRIMETHOPRIM. [Concomitant]
     Active Substance: TRIMETHOPRIM
     Dates: start: 20190913
  9. PROPRANOLOL [Concomitant]
     Active Substance: PROPRANOLOL HYDROCHLORIDE
     Dosage: HALF TO ONE TAKEN AS REQUIED UP TO TO BE TAKEN ...
     Dates: start: 20190712, end: 20190809
  10. BISOPROLOL [Concomitant]
     Active Substance: BISOPROLOL
     Dates: start: 20180322, end: 20190705

REACTIONS (2)
  - Rash [Unknown]
  - Fixed eruption [Recovered/Resolved]
